FAERS Safety Report 18935846 (Version 1)
Quarter: 2021Q1

REPORT INFORMATION
  Report Type: Spontaneous
  Country: GB (occurrence: GB)
  Receive Date: 20210225
  Receipt Date: 20210225
  Transmission Date: 20210420
  Serious: Yes (Congenital Anomaly, Other)
  Sender: FDA-Public Use
  Company Number: GB-AUROBINDO-AUR-APL-2021-007681

PATIENT
  Age: 24 Week
  Sex: Female

DRUGS (5)
  1. TENOFOVIR DISOPROXIL [Suspect]
     Active Substance: TENOFOVIR DISOPROXIL
     Indication: PRODUCT USED FOR UNKNOWN INDICATION
     Dosage: UNK (TOTAL DAILY DOSE: 1DOSAGE UNIT: TAB/CAPS)
     Route: 064
     Dates: start: 20101110
  2. ATAZANAVIR. [Suspect]
     Active Substance: ATAZANAVIR
     Indication: PRODUCT USED FOR UNKNOWN INDICATION
     Dosage: 300 MILLIGRAM
     Route: 064
     Dates: start: 20190205
  3. EMTRICITABINE [Suspect]
     Active Substance: EMTRICITABINE
     Indication: PRODUCT USED FOR UNKNOWN INDICATION
     Dosage: UNK (TOTAL DAILY DOSE: 1DOSAGE UNIT: TAB/CAPS)
     Route: 064
     Dates: start: 20101110
  4. EVOTAZ [Suspect]
     Active Substance: ATAZANAVIR SULFATE\COBICISTAT
     Indication: PRODUCT USED FOR UNKNOWN INDICATION
     Dosage: 1 DOSAGE FORM (TOTAL DAILY DOSE: 1DOSAGE UNIT: TAB/CAPS)
     Route: 064
     Dates: start: 20171014, end: 20190204
  5. RITONAVIR. [Suspect]
     Active Substance: RITONAVIR
     Indication: PRODUCT USED FOR UNKNOWN INDICATION
     Dosage: UNK (TOTAL DAILY DOSE: 100DOSAGE UNIT: MG/KG/HR)
     Route: 064
     Dates: start: 20190205

REACTIONS (2)
  - Spina bifida [Unknown]
  - Foetal exposure during pregnancy [Unknown]
